FAERS Safety Report 9736262 (Version 2)
Quarter: 2013Q4

REPORT INFORMATION
  Report Type: Spontaneous
  Country: TR (occurrence: TR)
  Receive Date: 20131206
  Receipt Date: 20131212
  Transmission Date: 20140711
  Serious: Yes (Hospitalization, Other)
  Sender: FDA-Public Use
  Company Number: TR-PFIZER INC-2013342904

PATIENT
  Age: 29 Year
  Sex: Male

DRUGS (4)
  1. AMPICILLIN SODIUM/SULBACTAM SODIUM [Suspect]
     Indication: TONSILLITIS
     Dosage: 1 G, UNK
     Route: 030
  2. AMPICILLIN SODIUM/SULBACTAM SODIUM [Suspect]
     Indication: UPPER RESPIRATORY TRACT INFECTION
  3. AMOXICILLIN TRIHYDRATE/CLAVULANATE POTASSIUM [Suspect]
     Indication: TONSILLITIS
     Dosage: 1 G, UNK
     Route: 048
  4. AMOXICILLIN TRIHYDRATE/CLAVULANATE POTASSIUM [Suspect]
     Indication: UPPER RESPIRATORY TRACT INFECTION

REACTIONS (2)
  - Myocardial infarction [Recovered/Resolved]
  - Kounis syndrome [Recovered/Resolved]
